FAERS Safety Report 21415531 (Version 4)
Quarter: 2025Q2

REPORT INFORMATION
  Report Type: Report from Study
  Country: US (occurrence: US)
  Receive Date: 20221006
  Receipt Date: 20250529
  Transmission Date: 20250717
  Serious: Yes (Other)
  Sender: ABBVIE
  Company Number: US-ABBVIE-4140702

PATIENT
  Age: 69 Year
  Sex: Male

DRUGS (2)
  1. HUMIRA [Suspect]
     Active Substance: ADALIMUMAB
     Indication: Crohn^s disease
     Route: 058
     Dates: start: 20220425
  2. MODERNA COVID-19 VACCINE [Concomitant]
     Active Substance: ELASOMERAN
     Indication: COVID-19 immunisation
     Route: 030

REACTIONS (6)
  - Stoma prolapse [Unknown]
  - Colon operation [Unknown]
  - Therapeutic product effect incomplete [Unknown]
  - Gastrointestinal pain [Not Recovered/Not Resolved]
  - Ileostomy [Unknown]
  - Anal injury [Not Recovered/Not Resolved]

NARRATIVE: CASE EVENT DATE: 20240701
